FAERS Safety Report 13845043 (Version 1)
Quarter: 2017Q3

REPORT INFORMATION
  Report Type: Spontaneous
  Country: BR (occurrence: BR)
  Receive Date: 20170808
  Receipt Date: 20170808
  Transmission Date: 20171127
  Serious: Yes (Congenital Anomaly)
  Sender: FDA-Public Use
  Company Number: BR-SA-2017SA138689

PATIENT
  Sex: Female
  Weight: 1.6 kg

DRUGS (3)
  1. CLEXANE [Suspect]
     Active Substance: ENOXAPARIN SODIUM
     Indication: THROMBOSIS
     Route: 064
     Dates: start: 20160924
  2. CLEXANE [Suspect]
     Active Substance: ENOXAPARIN SODIUM
     Indication: THROMBOSIS
     Route: 064
  3. CLEXANE [Suspect]
     Active Substance: ENOXAPARIN SODIUM
     Indication: THROMBOSIS
     Route: 064
     Dates: end: 20170329

REACTIONS (4)
  - Foetal exposure during pregnancy [Unknown]
  - Foetal growth abnormality [Unknown]
  - Gene mutation [Unknown]
  - Apgar score low [Unknown]
